FAERS Safety Report 8607407 (Version 4)
Quarter: 2014Q2

REPORT INFORMATION
  Report Type: Spontaneous
  Country: US (occurrence: US)
  Receive Date: 20120611
  Receipt Date: 20140404
  Transmission Date: 20141212
  Serious: Yes (Hospitalization, Disabling, Other)
  Sender: FDA-Public Use
  Company Number: US-ASTRAZENECA-2012SE34991

PATIENT
  Age: 49 Year
  Sex: Female
  Weight: 67.1 kg

DRUGS (29)
  1. NEXIUM [Suspect]
     Indication: HIATUS HERNIA
     Route: 048
     Dates: start: 1998, end: 2012
  2. NEXIUM [Suspect]
     Indication: BARRETT^S OESOPHAGUS
     Route: 048
     Dates: start: 1998, end: 2012
  3. NEXIUM [Suspect]
     Indication: GASTROOESOPHAGEAL REFLUX DISEASE
     Route: 048
     Dates: start: 1998, end: 2012
  4. NEXIUM [Suspect]
     Indication: HIATUS HERNIA
     Route: 048
     Dates: start: 200811
  5. NEXIUM [Suspect]
     Indication: BARRETT^S OESOPHAGUS
     Route: 048
     Dates: start: 200811
  6. NEXIUM [Suspect]
     Indication: GASTROOESOPHAGEAL REFLUX DISEASE
     Route: 048
     Dates: start: 200811
  7. NEXIUM [Suspect]
     Indication: HIATUS HERNIA
     Route: 048
     Dates: start: 20120606
  8. NEXIUM [Suspect]
     Indication: BARRETT^S OESOPHAGUS
     Route: 048
     Dates: start: 20120606
  9. NEXIUM [Suspect]
     Indication: GASTROOESOPHAGEAL REFLUX DISEASE
     Route: 048
     Dates: start: 20120606
  10. NEXIUM [Suspect]
     Indication: HIATUS HERNIA
     Route: 048
     Dates: start: 2013
  11. NEXIUM [Suspect]
     Indication: BARRETT^S OESOPHAGUS
     Route: 048
     Dates: start: 2013
  12. NEXIUM [Suspect]
     Indication: GASTROOESOPHAGEAL REFLUX DISEASE
     Route: 048
     Dates: start: 2013
  13. NEXIUM [Suspect]
     Indication: HIATUS HERNIA
     Route: 048
     Dates: start: 2013
  14. NEXIUM [Suspect]
     Indication: BARRETT^S OESOPHAGUS
     Route: 048
     Dates: start: 2013
  15. NEXIUM [Suspect]
     Indication: GASTROOESOPHAGEAL REFLUX DISEASE
     Route: 048
     Dates: start: 2013
  16. TUMS [Concomitant]
     Dates: start: 1998
  17. GLYCOPYRROLATE [Concomitant]
     Indication: HYPERHIDROSIS
  18. PERCOCET [Concomitant]
     Indication: PAIN
     Dosage: 10/325
  19. OPANA [Concomitant]
     Indication: PAIN
  20. SKELAXIN [Concomitant]
     Indication: MUSCLE SPASMS
  21. NORCO [Concomitant]
     Indication: PAIN
     Dosage: 10/325
  22. CLONADINE [Concomitant]
     Indication: NIGHT SWEATS
  23. XANAX [Concomitant]
     Indication: PAIN
     Dates: start: 200811
  24. GLUCOSAMINE [Concomitant]
     Indication: ARTHROPATHY
  25. B COMPLEX [Concomitant]
  26. VALIUM [Concomitant]
     Dates: start: 200811
  27. CYCLOBENZAPRINE HCL [Concomitant]
     Dates: start: 200811
  28. PROCHLORPERAZINE [Concomitant]
     Indication: NAUSEA
     Route: 048
     Dates: start: 20120509
  29. TOPIRAMATE [Concomitant]
     Dates: start: 20110615

REACTIONS (20)
  - Cervical vertebral fracture [Unknown]
  - Arthritis [Unknown]
  - Spinal osteoarthritis [Unknown]
  - Post procedural infection [Unknown]
  - Musculoskeletal stiffness [Unknown]
  - Abasia [Unknown]
  - Osteoporosis [Unknown]
  - Angina pectoris [Unknown]
  - Multiple fractures [Unknown]
  - Atrophy [Unknown]
  - Bone disorder [Unknown]
  - Bone pain [Unknown]
  - Calcium deficiency [Unknown]
  - Carpal tunnel syndrome [Unknown]
  - Cervical spinal stenosis [Unknown]
  - Intervertebral disc degeneration [Unknown]
  - Lumbar spinal stenosis [Unknown]
  - Intervertebral disc protrusion [Unknown]
  - Radiculitis [Unknown]
  - Post laminectomy syndrome [Unknown]
